FAERS Safety Report 7158317-6 (Version None)
Quarter: 2010Q4

REPORT INFORMATION
  Report Type: 
  Country: None (occurrence: None)
  Receive Date: 20101130
  Receipt Date: 20101115
  Transmission Date: 20110411
  Serious: Yes (Life-Threatening)
  Sender: FDA-Public Use
  Company Number: 201011AGG00960

PATIENT
  Age: 41 Year
  Sex: Male
  Weight: 72 kg

DRUGS (2)
  1. AGGRASTAT [Suspect]
     Indication: MYOCARDIAL INFARCTION
     Dosage: (36 ML CONC. FOR SOL. INF) INTRAVENOUS) )
     Route: 042
  2. HEPARIN [Concomitant]

REACTIONS (4)
  - OVERDOSE [None]
  - PULMONARY HAEMORRHAGE [None]
  - PULMONARY OEDEMA [None]
  - WRONG DRUG ADMINISTERED [None]
